FAERS Safety Report 24875698 (Version 1)
Quarter: 2025Q1

REPORT INFORMATION
  Report Type: Report from Study
  Country: GB (occurrence: GB)
  Receive Date: 20250122
  Receipt Date: 20250122
  Transmission Date: 20250408
  Serious: Yes (Death)
  Sender: ABBVIE
  Company Number: GB-ABBVIE-6099060

PATIENT

DRUGS (1)
  1. BOTOX [Suspect]
     Active Substance: ONABOTULINUMTOXINA
     Indication: Product used for unknown indication
     Route: 065

REACTIONS (1)
  - Death [Fatal]
